FAERS Safety Report 4730732-7 (Version None)
Quarter: 2005Q3

REPORT INFORMATION
  Report Type: 
  Country: None (occurrence: None)
  Receive Date: 20050725
  Receipt Date: 20050223
  Transmission Date: 20060218
  Serious: No
  Sender: FDA-Public Use
  Company Number: USA050291689

PATIENT
  Sex: Female

DRUGS (3)
  1. STRATTERA [Suspect]
     Dosage: 20 MG
  2. GLIPIZIDE [Concomitant]
  3. GLUCOPHAGE [Concomitant]

REACTIONS (1)
  - VISUAL ACUITY REDUCED [None]
